FAERS Safety Report 12905976 (Version 1)
Quarter: 2016Q4

REPORT INFORMATION
  Report Type: Spontaneous
  Country: US (occurrence: US)
  Receive Date: 20161101
  Receipt Date: 20161101
  Transmission Date: 20170207
  Serious: No
  Sender: FDA-Public Use
  Company Number: None

PATIENT
  Age: 85 Year
  Sex: Male

DRUGS (12)
  1. PRINIDONE [Concomitant]
  2. PROPRANOLOL [Concomitant]
     Active Substance: PROPRANOLOL\PROPRANOLOL HYDROCHLORIDE
  3. FOLIC ACID. [Concomitant]
     Active Substance: FOLIC ACID
  4. MULTI VITAMIN [Concomitant]
     Active Substance: VITAMINS
  5. FIBERCON [Concomitant]
     Active Substance: CALCIUM POLYCARBOPHIL
  6. NAMENDA [Concomitant]
     Active Substance: MEMANTINE HYDROCHLORIDE
  7. ENBREL [Suspect]
     Active Substance: ETANERCEPT
     Indication: PSORIASIS
     Route: 058
     Dates: start: 20150313
  8. OMEPRAZOLE. [Concomitant]
     Active Substance: OMEPRAZOLE
  9. TAMSULOSIN [Concomitant]
     Active Substance: TAMSULOSIN
  10. ASPIRIN. [Concomitant]
     Active Substance: ASPIRIN
  11. MEMANTINE. [Concomitant]
     Active Substance: MEMANTINE
  12. ADODART [Concomitant]

REACTIONS (1)
  - Skin cancer [None]

NARRATIVE: CASE EVENT DATE: 20161026
